FAERS Safety Report 16503566 (Version 3)
Quarter: 2020Q2

REPORT INFORMATION
  Report Type: Spontaneous
  Country: US (occurrence: US)
  Receive Date: 20190701
  Receipt Date: 20200410
  Transmission Date: 20200713
  Serious: Yes (Other)
  Sender: FDA-Public Use
  Company Number: US-PFIZER INC-2019086117

PATIENT
  Age: 78 Year
  Sex: Female
  Weight: 104.3 kg

DRUGS (7)
  1. REVATIO [Suspect]
     Active Substance: SILDENAFIL CITRATE
     Indication: PULMONARY HYPERTENSION
     Dosage: 40 MG, 2X/DAY (20MG, TWO PILLS TWICE A DAY)
     Route: 048
     Dates: start: 2015
  2. FUROSEMIDE. [Concomitant]
     Active Substance: FUROSEMIDE
     Indication: FLUID RETENTION
     Dosage: 60 MG, DAILY (2 TABLETS IN THE MORNING AND 1 IN THE AFTERNOON)
     Route: 048
  3. REVATIO [Suspect]
     Active Substance: SILDENAFIL CITRATE
     Indication: PULMONARY FIBROSIS
     Dosage: 40 MG, 2X/DAY (2 TABS BID)
  4. ALLOPURINOL. [Concomitant]
     Active Substance: ALLOPURINOL
     Indication: GOUT
     Dosage: 300 MG, 1X/DAY
     Route: 048
     Dates: start: 2005
  5. OXYGEN. [Concomitant]
     Active Substance: OXYGEN
     Dosage: UNK
  6. OMEPRAZOLE. [Concomitant]
     Active Substance: OMEPRAZOLE
     Indication: OESOPHAGEAL DISORDER
     Dosage: 20 MG, 2X/DAY, (30 MINUTES BEFORE BREAKFAST AND DINNER)
     Dates: start: 2017
  7. ACETYLSALICYLIC ACID [Concomitant]
     Active Substance: ASPIRIN
     Dosage: UNK

REACTIONS (3)
  - Off label use [Unknown]
  - Cataract [Unknown]
  - Product use issue [Unknown]

NARRATIVE: CASE EVENT DATE: 2015
